FAERS Safety Report 25764498 (Version 1)
Quarter: 2025Q3

REPORT INFORMATION
  Report Type: Spontaneous
  Country: US (occurrence: US)
  Receive Date: 20250905
  Receipt Date: 20250905
  Transmission Date: 20251021
  Serious: No
  Sender: DOMPE FARMACEUTICI
  Company Number: US-FARMAPROD-202501-0026

PATIENT
  Sex: Female

DRUGS (19)
  1. OXERVATE [Suspect]
     Active Substance: CENEGERMIN-BKBJ
     Indication: Neurotrophic keratopathy
     Route: 047
     Dates: start: 20241120
  2. OXERVATE [Suspect]
     Active Substance: CENEGERMIN-BKBJ
  3. MUCUS [Concomitant]
     Active Substance: GUAIFENESIN
  4. ARTIFICIAL TEARS [Concomitant]
  5. ZOLOFT [Concomitant]
     Active Substance: SERTRALINE HYDROCHLORIDE
  6. POTASSIUM CHLORIDE [Concomitant]
     Active Substance: POTASSIUM CHLORIDE
  7. VITAMINS [Concomitant]
     Active Substance: VITAMINS
  8. COZAAR [Concomitant]
     Active Substance: LOSARTAN POTASSIUM
  9. IMODIUM [Concomitant]
     Active Substance: LOPERAMIDE HYDROCHLORIDE
  10. LEVOTHYROXINE SODIUM [Concomitant]
     Active Substance: LEVOTHYROXINE SODIUM
  11. LAMICTAL [Concomitant]
     Active Substance: LAMOTRIGINE
  12. LASIX [Concomitant]
     Active Substance: FUROSEMIDE
  13. IRON [Concomitant]
     Active Substance: IRON
  14. COREG [Concomitant]
     Active Substance: CARVEDILOL
  15. CARBOXYMETHYLCELLULOSE SODIUM [Concomitant]
     Active Substance: CARBOXYMETHYLCELLULOSE SODIUM
  16. CALCIUM CARBONATE [Concomitant]
     Active Substance: CALCIUM CARBONATE
  17. LIPITOR [Concomitant]
     Active Substance: ATORVASTATIN CALCIUM
  18. AMLODIPINE BESYLATE [Concomitant]
     Active Substance: AMLODIPINE BESYLATE
  19. TYLENOL [Concomitant]
     Active Substance: ACETAMINOPHEN

REACTIONS (2)
  - Product dose omission issue [Unknown]
  - Product use complaint [Unknown]
